FAERS Safety Report 12849000 (Version 2)
Quarter: 2016Q4

REPORT INFORMATION
  Report Type: Report from Study
  Country: None (occurrence: NL)
  Receive Date: 20161014
  Receipt Date: 20161102
  Transmission Date: 20170207
  Serious: Yes (Death, Life-Threatening, Other)
  Sender: FDA-Public Use
  Company Number: NL-ABBVIE-16P-114-1751405-00

PATIENT
  Age: 72 Year
  Sex: Male

DRUGS (2)
  1. DUODOPA [Suspect]
     Active Substance: CARBIDOPA\LEVODOPA
     Indication: PARKINSON^S DISEASE
     Dosage: MORNING DOSE: 4.0, CONTINUOUS DOSE: 5.6,EXTRA DOSE: 3.0, NIGHT DOSE: 2.8
     Route: 050
     Dates: start: 20150422
  2. DUODOPA [Suspect]
     Active Substance: CARBIDOPA\LEVODOPA
     Indication: ON AND OFF PHENOMENON

REACTIONS (4)
  - Cognitive disorder [Not Recovered/Not Resolved]
  - Psychotic disorder [Fatal]
  - Euthanasia [Unknown]
  - Parkinson^s disease [Fatal]

NARRATIVE: CASE EVENT DATE: 20161011
